FAERS Safety Report 6807549-2 (Version None)
Quarter: 2010Q2

REPORT INFORMATION
  Report Type: 
  Country: None (occurrence: None)
  Receive Date: 20100629
  Receipt Date: 20081016
  Transmission Date: 20101027
  Serious: Yes (Disabling, Other)
  Sender: FDA-Public Use
  Company Number: US-PFIZER INC-2008087254

PATIENT
  Sex: Male
  Weight: 81.818 kg

DRUGS (4)
  1. VIAGRA [Suspect]
     Indication: ERECTILE DYSFUNCTION
     Dates: start: 20080901
  2. LIPITOR [Concomitant]
  3. ZOLOFT [Concomitant]
  4. ACETYLSALICYLIC ACID [Concomitant]

REACTIONS (3)
  - DYSPNOEA [None]
  - HEARING IMPAIRED [None]
  - NASAL CONGESTION [None]
